FAERS Safety Report 7823501-2 (Version None)
Quarter: 2011Q4

REPORT INFORMATION
  Report Type: 
  Country: None (occurrence: None)
  Receive Date: 20111019
  Receipt Date: 20111014
  Transmission Date: 20120403
  Serious: Yes (Other)
  Sender: FDA-Public Use
  Company Number: SE-PFIZER INC-2010087474

PATIENT
  Age: 32 Year
  Sex: Male

DRUGS (2)
  1. LYRICA [Suspect]
     Indication: DEPRESSION
     Dosage: UNK
  2. LYRICA [Suspect]
     Indication: ANXIETY

REACTIONS (5)
  - PARALYSIS [None]
  - MICTURITION DISORDER [None]
  - FATIGUE [None]
  - PYREXIA [None]
  - MUSCULAR WEAKNESS [None]
